FAERS Safety Report 5716646-4 (Version None)
Quarter: 2008Q2

REPORT INFORMATION
  Report Type: 
  Country: None (occurrence: None)
  Receive Date: 20080424
  Receipt Date: 20070410
  Transmission Date: 20081010
  Serious: No
  Sender: FDA-Public Use
  Company Number: US-BAYER-200613210BWH

PATIENT
  Age: 58 Year
  Sex: Male

DRUGS (5)
  1. LEVITRA [Suspect]
     Indication: UNEVALUABLE EVENT
     Dosage: AS USED: 20 MG  UNIT DOSE: 20 MG
     Route: 048
     Dates: start: 20060416
  2. LEVITRA [Suspect]
     Dosage: TOTAL DAILY DOSE: 10 MG  UNIT DOSE: 20 MG
     Route: 048
     Dates: start: 20050101
  3. KLONOPIN [Concomitant]
     Indication: ANXIETY
  4. LEVOXYL [Concomitant]
     Indication: HYPOTHYROIDISM
  5. PROSCAR [Concomitant]
     Indication: BENIGN PROSTATIC HYPERPLASIA

REACTIONS (2)
  - ANXIETY [None]
  - VISION BLURRED [None]
